FAERS Safety Report 7485583-X (Version None)
Quarter: 2011Q2

REPORT INFORMATION
  Report Type: 
  Country: None (occurrence: None)
  Receive Date: 20110516
  Receipt Date: 20110516
  Transmission Date: 20111010
  Serious: No
  Sender: FDA-Public Use
  Company Number: None

PATIENT
  Sex: Female
  Weight: 51.8 kg

DRUGS (1)
  1. RITALIN LA [Suspect]
     Indication: ATTENTION DEFICIT/HYPERACTIVITY DISORDER
     Dosage: 1 40MG CAPSULE DAILY ORAL 047
     Route: 048
     Dates: start: 20110411, end: 20110420

REACTIONS (5)
  - RESTLESSNESS [None]
  - DRUG DOSE OMISSION [None]
  - PRODUCT QUALITY ISSUE [None]
  - DRUG EFFECT DECREASED [None]
  - DISTURBANCE IN ATTENTION [None]
